FAERS Safety Report 8398149-4 (Version None)
Quarter: 2012Q2

REPORT INFORMATION
  Report Type: 
  Country: None (occurrence: None)
  Receive Date: 20120531
  Receipt Date: 20120525
  Transmission Date: 20120825
  Serious: Yes (Hospitalization)
  Sender: FDA-Public Use
  Company Number: PHHY2012GB044949

PATIENT
  Age: 67 Year
  Sex: Female

DRUGS (12)
  1. LEVOTHYROXINE SODIUM [Concomitant]
  2. PREDNISOLONE [Suspect]
     Indication: LOWER RESPIRATORY TRACT INFECTION
     Dosage: UNK
     Route: 048
     Dates: start: 20120309, end: 20120316
  3. LEVOFLOXACIN [Suspect]
     Indication: LOWER RESPIRATORY TRACT INFECTION
     Dosage: 500 MG, UNK
     Route: 048
     Dates: start: 20120309, end: 20120316
  4. CLOPIDOGREL [Concomitant]
  5. TROPIUM [Concomitant]
  6. DILTIAZEM HCL [Concomitant]
  7. ACETAMINOPHEN AND CODEINE PHOSPHATE [Concomitant]
  8. SIMVASTATIN [Concomitant]
  9. TERBUTALINE [Concomitant]
  10. VENLAFAXINE [Concomitant]
  11. MOVIPREP [Concomitant]
  12. NICORANDIL [Concomitant]

REACTIONS (2)
  - TENDON RUPTURE [None]
  - TENDON PAIN [None]
